FAERS Safety Report 13449106 (Version 2)
Quarter: 2017Q2

REPORT INFORMATION
  Report Type: Spontaneous
  Country: US (occurrence: US)
  Receive Date: 20170417
  Receipt Date: 20170427
  Transmission Date: 20170830
  Serious: No
  Sender: FDA-Public Use
  Company Number: US-PFIZER INC-2017159997

PATIENT
  Age: 50 Year
  Sex: Female
  Weight: 56 kg

DRUGS (1)
  1. SUTENT [Suspect]
     Active Substance: SUNITINIB MALATE
     Indication: RENAL CANCER
     Dosage: 50 MG, CYCLIC, (DAY 1-14 Q 21 DAYS)
     Route: 048
     Dates: start: 20170401

REACTIONS (10)
  - Epistaxis [Unknown]
  - Back pain [Unknown]
  - White blood cell count decreased [Unknown]
  - Nausea [Unknown]
  - Bowel movement irregularity [Unknown]
  - Hypoaesthesia oral [Unknown]
  - Abdominal pain lower [Unknown]
  - Dizziness [Unknown]
  - Fatigue [Unknown]
  - Pain [Unknown]
